FAERS Safety Report 8447452-8 (Version None)
Quarter: 2012Q2

REPORT INFORMATION
  Report Type: 
  Country: None (occurrence: None)
  Receive Date: 20120619
  Receipt Date: 20120607
  Transmission Date: 20120825
  Serious: Yes (Hospitalization)
  Sender: FDA-Public Use
  Company Number: JP-ELI_LILLY_AND_COMPANY-JP201204007384

PATIENT
  Age: 82 Year
  Sex: Male

DRUGS (2)
  1. FORTEO [Suspect]
     Dosage: UNK
     Route: 058
     Dates: end: 20120501
  2. FORTEO [Suspect]
     Dosage: UNK
     Route: 058
     Dates: end: 20120401

REACTIONS (6)
  - HYPOAESTHESIA [None]
  - SPINAL OPERATION [None]
  - GRIP STRENGTH DECREASED [None]
  - DYSARTHRIA [None]
  - DECREASED APPETITE [None]
  - STRESS [None]
